FAERS Safety Report 4636352-7 (Version None)
Quarter: 2005Q2

REPORT INFORMATION
  Report Type: 
  Country: None (occurrence: None)
  Receive Date: 20050415
  Receipt Date: 20041229
  Transmission Date: 20051028
  Serious: No
  Sender: FDA-Public Use
  Company Number: US-BRISTOL-MYERS SQUIBB COMPANY-12808770

PATIENT
  Age: 25 Year
  Sex: Female

DRUGS (1)
  1. PARAPLATIN [Suspect]
     Indication: NEOPLASM MALIGNANT
     Dosage: CYCLE 1 - 07-DEC-2004 AND CYCLE 2 - 21-DEC-2004.
     Route: 042
     Dates: start: 20041228, end: 20041228

REACTIONS (3)
  - ABDOMINAL PAIN [None]
  - FLUSHING [None]
  - SWELLING [None]
